FAERS Safety Report 24294148 (Version 1)
Quarter: 2024Q3

REPORT INFORMATION
  Report Type: Spontaneous
  Country: US (occurrence: US)
  Receive Date: 20240906
  Receipt Date: 20240906
  Transmission Date: 20241017
  Serious: No
  Sender: DOMPE FARMACEUTICI
  Company Number: US-FARMAPROD-202308-202405-1879

PATIENT
  Age: 63 Year
  Sex: Female

DRUGS (8)
  1. OXERVATE [Suspect]
     Active Substance: CENEGERMIN-BKBJ
     Indication: Neurotrophic keratopathy
     Route: 047
     Dates: start: 20240512
  2. OXERVATE [Suspect]
     Active Substance: CENEGERMIN-BKBJ
  3. REFRESH LIQUIGEL [Concomitant]
     Active Substance: CARBOXYMETHYLCELLULOSE SODIUM
     Dosage: LIQUID GEL
  4. SYSTANE COMPLETE [Concomitant]
     Active Substance: PROPYLENE GLYCOL
  5. LUMIFY [Concomitant]
     Active Substance: BRIMONIDINE TARTRATE
  6. ESCITALOPRAM OXALATE [Concomitant]
     Active Substance: ESCITALOPRAM OXALATE
  7. LISINOPRIL [Concomitant]
     Active Substance: LISINOPRIL
  8. ROSUVASTATIN CALCIUM [Concomitant]
     Active Substance: ROSUVASTATIN CALCIUM

REACTIONS (5)
  - Product dose omission issue [Unknown]
  - Eye irritation [Unknown]
  - Eye pain [Unknown]
  - Ocular hyperaemia [Unknown]
  - Wrong technique in product usage process [Unknown]

NARRATIVE: CASE EVENT DATE: 20240513
